FAERS Safety Report 9787502 (Version 2)
Quarter: 2013Q4

REPORT INFORMATION
  Report Type: Report from Study
  Country: US (occurrence: US)
  Receive Date: 20131230
  Receipt Date: 20131230
  Transmission Date: 20140711
  Serious: Yes (Other)
  Sender: FDA-Public Use
  Company Number: US-ROCHE-1298005

PATIENT
  Age: 3 Year
  Sex: Female
  Weight: 13.6 kg

DRUGS (2)
  1. NUTROPIN AQ [Suspect]
     Indication: GROWTH HORMONE DEFICIENCY
     Route: 058
     Dates: start: 201308
  2. LEVOTHYROXINE [Concomitant]
     Indication: HYPOTHYROIDISM
     Route: 048
     Dates: start: 201202

REACTIONS (7)
  - Aggression [Unknown]
  - Snoring [Unknown]
  - Tonsillar hypertrophy [Unknown]
  - Polyuria [Unknown]
  - Laboratory test abnormal [Unknown]
  - Diabetes insipidus [Unknown]
  - Polydipsia [Unknown]
